FAERS Safety Report 7246719-9 (Version None)
Quarter: 2011Q1

REPORT INFORMATION
  Report Type: 
  Country: None (occurrence: None)
  Receive Date: 20110127
  Receipt Date: 20101123
  Transmission Date: 20110831
  Serious: Yes (Hospitalization, Other)
  Sender: FDA-Public Use
  Company Number: SE-BAYER-2010-000027

PATIENT
  Sex: Male

DRUGS (1)
  1. KOGENATE [Suspect]
     Indication: FACTOR VIII DEFICIENCY
     Dosage: 1500 IU/KG, QD
     Route: 042
     Dates: start: 20100924

REACTIONS (3)
  - PRURITUS [None]
  - ANTI FACTOR VIII ANTIBODY TEST [None]
  - URTICARIA [None]
